FAERS Safety Report 18930274 (Version 13)
Quarter: 2022Q1

REPORT INFORMATION
  Report Type: Spontaneous
  Country: GB (occurrence: GB)
  Receive Date: 20210223
  Receipt Date: 20220221
  Transmission Date: 20220423
  Serious: Yes (Other)
  Sender: FDA-Public Use
  Company Number: None

PATIENT
  Age: 30 Year
  Sex: Male

DRUGS (28)
  1. QUETIAPINE [Suspect]
     Active Substance: QUETIAPINE
     Indication: Product used for unknown indication
     Dosage: 30-DEC-2020
     Route: 048
     Dates: end: 20201230
  2. QUETIAPINE [Suspect]
     Active Substance: QUETIAPINE
     Dosage: 30-DEC-2020
     Route: 048
  3. QUETIAPINE [Suspect]
     Active Substance: QUETIAPINE
     Dosage: 30-DEC-2020
     Route: 048
     Dates: end: 20201230
  4. CYCLIZINE HYDROCHLORIDE [Suspect]
     Active Substance: CYCLIZINE HYDROCHLORIDE
     Indication: Product used for unknown indication
     Dosage: UNK
     Route: 042
     Dates: end: 20201230
  5. CYCLIZINE HYDROCHLORIDE [Suspect]
     Active Substance: CYCLIZINE HYDROCHLORIDE
     Dosage: UNK, START 30-DEC-2020
     Route: 042
     Dates: end: 20201230
  6. CYCLIZINE HYDROCHLORIDE [Suspect]
     Active Substance: CYCLIZINE HYDROCHLORIDE
     Dosage: UNK, START 30-DEC-2020
     Route: 042
     Dates: end: 20201230
  7. CYCLIZINE HYDROCHLORIDE [Suspect]
     Active Substance: CYCLIZINE HYDROCHLORIDE
     Dosage: UNK, START 30-DEC-2020
     Route: 042
     Dates: end: 20201230
  8. HALDOL [Suspect]
     Active Substance: HALOPERIDOL
     Indication: Product used for unknown indication
     Dosage: UNK
     Route: 042
     Dates: start: 20201229, end: 20201230
  9. HALDOL [Suspect]
     Active Substance: HALOPERIDOL
     Dosage: START DATE: 29-DEC-2020
     Route: 042
     Dates: end: 20201230
  10. HALDOL [Suspect]
     Active Substance: HALOPERIDOL
     Dosage: START DATE: 29-DEC-2020
     Route: 042
     Dates: end: 20201230
  11. HALDOL [Suspect]
     Active Substance: HALOPERIDOL
     Dosage: UNK
  12. QUETIAPINE FUMARATE [Suspect]
     Active Substance: QUETIAPINE FUMARATE
     Indication: Product used for unknown indication
     Dosage: UNK, START 30-DEC-2020
     Route: 048
     Dates: end: 20201230
  13. QUETIAPINE FUMARATE [Suspect]
     Active Substance: QUETIAPINE FUMARATE
     Dosage: UNK, START 30-DEC-2020
     Route: 048
     Dates: end: 20201230
  14. QUETIAPINE FUMARATE [Suspect]
     Active Substance: QUETIAPINE FUMARATE
     Dosage: UNK, START 30-DEC-2020
     Route: 048
     Dates: end: 20201230
  15. QUETIAPINE FUMARATE [Suspect]
     Active Substance: QUETIAPINE FUMARATE
     Dosage: UNK, START 30-DEC-2020
     Route: 048
     Dates: end: 20201230
  16. HALDOL [Suspect]
     Active Substance: HALOPERIDOL
     Indication: Product used for unknown indication
     Dosage: UNK29-DEC-2020
     Dates: end: 20201230
  17. HALDOL [Suspect]
     Active Substance: HALOPERIDOL
     Dosage: UNK
  18. HALDOL [Suspect]
     Active Substance: HALOPERIDOL
     Dosage: UNK
     Dates: start: 20201229, end: 20201230
  19. HALDOL [Suspect]
     Active Substance: HALOPERIDOL
     Dosage: UNK
     Route: 048
     Dates: start: 20201229, end: 20201230
  20. ACETAMINOPHEN [Suspect]
     Active Substance: ACETAMINOPHEN
     Indication: Product used for unknown indication
     Dosage: UNK
     Route: 042
     Dates: start: 20201229, end: 20201230
  21. ACETAMINOPHEN [Suspect]
     Active Substance: ACETAMINOPHEN
     Dosage: UNK
     Route: 042
     Dates: start: 20201229, end: 20201230
  22. DOXYLAMINE SUCCINATE [Suspect]
     Active Substance: DOXYLAMINE SUCCINATE
     Indication: Product used for unknown indication
     Dosage: UNK
     Route: 042
     Dates: start: 20201229, end: 20201230
  23. RISPERIDONE [Suspect]
     Active Substance: RISPERIDONE
     Indication: Product used for unknown indication
     Dosage: UNK
     Dates: start: 20201229, end: 20201230
  24. RISPERIDONE [Suspect]
     Active Substance: RISPERIDONE
     Dosage: UNK
     Route: 048
     Dates: start: 20201229, end: 20201230
  25. QUETIAPINE FUMARATE [Suspect]
     Active Substance: QUETIAPINE FUMARATE
     Indication: Product used for unknown indication
     Dosage: 30-DEC-2020
     Route: 048
     Dates: end: 20201230
  26. QUETIAPINE FUMARATE [Suspect]
     Active Substance: QUETIAPINE FUMARATE
     Dosage: UNK
     Route: 065
  27. ACETAMINOPHEN [Suspect]
     Active Substance: ACETAMINOPHEN
     Indication: Product used for unknown indication
     Dosage: UNK
     Route: 048
     Dates: start: 20201229, end: 20201230
  28. ACETAMINOPHEN [Suspect]
     Active Substance: ACETAMINOPHEN
     Indication: Product used for unknown indication
     Dosage: UNK
     Route: 042
     Dates: start: 20201229, end: 20201230

REACTIONS (5)
  - Tongue disorder [Recovered/Resolved]
  - Bruxism [Recovered/Resolved]
  - Dystonia [Recovered/Resolved]
  - Off label use [Unknown]
  - Incorrect route of product administration [Unknown]

NARRATIVE: CASE EVENT DATE: 20201229
